FAERS Safety Report 16116981 (Version 3)
Quarter: 2021Q1

REPORT INFORMATION
  Report Type: Spontaneous
  Country: GR (occurrence: GR)
  Receive Date: 20190326
  Receipt Date: 20210302
  Transmission Date: 20210419
  Serious: Yes (Death, Other)
  Sender: FDA-Public Use
  Company Number: GR-AMGEN-GRCSP2019045021

PATIENT

DRUGS (2)
  1. CARFILZOMIB [Suspect]
     Active Substance: CARFILZOMIB
     Indication: PLASMA CELL MYELOMA
     Dosage: 20/56 MG/M2
     Route: 065
  2. DEXAMETHASONE. [Concomitant]
     Active Substance: DEXAMETHASONE
     Indication: PLASMA CELL MYELOMA
     Dosage: UNK

REACTIONS (9)
  - Embolism venous [Unknown]
  - Death [Fatal]
  - Left ventricular dysfunction [Unknown]
  - Plasma cell myeloma [Unknown]
  - Pulmonary embolism [Unknown]
  - Hypertension [Unknown]
  - Acute coronary syndrome [Unknown]
  - Thrombotic microangiopathy [Unknown]
  - Cardiac failure [Unknown]
